FAERS Safety Report 10679126 (Version 1)
Quarter: 2014Q4

REPORT INFORMATION
  Report Type: Spontaneous
  Country: GB (occurrence: GB)
  Receive Date: 20141229
  Receipt Date: 20141229
  Transmission Date: 20150529
  Serious: Yes (Other)
  Sender: FDA-Public Use
  Company Number: GB-TEVA-530360ISR

PATIENT
  Age: 63 Year
  Sex: Female
  Weight: 64.86 kg

DRUGS (6)
  1. ANASTROZOLE. [Suspect]
     Active Substance: ANASTROZOLE
     Indication: BREAST CANCER
     Dosage: 1 DOSAGE FORMS DAILY;
     Route: 048
     Dates: start: 2012
  2. OMEPRAZOLE. [Concomitant]
     Active Substance: OMEPRAZOLE
  3. ADCAL-D3 [Concomitant]
     Active Substance: CALCIUM CARBONATE\CHOLECALCIFEROL
  4. AMLODIPINE [Concomitant]
     Active Substance: AMLODIPINE BESYLATE
  5. BENDROFLUMETHIAZIDE [Concomitant]
     Active Substance: BENDROFLUMETHIAZIDE
  6. RAMIPRIL. [Concomitant]
     Active Substance: RAMIPRIL

REACTIONS (12)
  - Onychoclasis [Recovered/Resolved]
  - Hot flush [Recovered/Resolved]
  - Product substitution issue [Unknown]
  - Lethargy [Recovered/Resolved]
  - Nausea [Recovered/Resolved]
  - Pruritus generalised [Recovered/Resolved]
  - Alopecia [Recovering/Resolving]
  - Formication [Recovered/Resolved]
  - Migraine [Recovering/Resolving]
  - Fatigue [Recovered/Resolved]
  - Rash maculo-papular [Recovering/Resolving]
  - Erythema [Recovering/Resolving]

NARRATIVE: CASE EVENT DATE: 2012
